FAERS Safety Report 8236331-7 (Version None)
Quarter: 2012Q1

REPORT INFORMATION
  Report Type: 
  Country: None (occurrence: None)
  Receive Date: 20120327
  Receipt Date: 20120316
  Transmission Date: 20120608
  Serious: Yes (Hospitalization)
  Sender: FDA-Public Use
  Company Number: US-JNJFOC-20120302459

PATIENT
  Sex: Male
  Weight: 85.73 kg

DRUGS (7)
  1. FLOMAX [Concomitant]
     Indication: PROSTATIC DISORDER
     Dosage: AS NEEDED
     Route: 048
     Dates: start: 20020101
  2. REMICADE [Suspect]
     Route: 042
  3. LOSARTAN POTASSIUM [Concomitant]
     Indication: HYPERTENSION
     Route: 048
     Dates: start: 20070101
  4. REMICADE [Suspect]
     Indication: ANKYLOSING SPONDYLITIS
     Route: 042
  5. REMICADE [Suspect]
     Route: 042
  6. REMICADE [Suspect]
     Route: 042
  7. PRILOSEC [Concomitant]
     Indication: ULCER
     Route: 048
     Dates: start: 20020101

REACTIONS (4)
  - CARDIAC FAILURE CONGESTIVE [None]
  - DRUG INEFFECTIVE [None]
  - ARTHRITIS [None]
  - PNEUMONIA [None]
